FAERS Safety Report 9018774 (Version 2)
Quarter: 2013Q1

REPORT INFORMATION
  Report Type: Spontaneous
  Country: FR (occurrence: FR)
  Receive Date: 20130118
  Receipt Date: 20130301
  Transmission Date: 20140127
  Serious: Yes (Death, Hospitalization, Other)
  Sender: FDA-Public Use
  Company Number: FR-ALEXION PHARMACEUTICALS INC.-A201300019

PATIENT
  Age: 62 Year
  Sex: Male
  Weight: 55 kg

DRUGS (4)
  1. SOLIRIS 300MG [Suspect]
     Indication: HAEMOLYTIC URAEMIC SYNDROME
     Dosage: 1200 MG, Q2W
     Route: 042
     Dates: start: 20121109
  2. ORACILLINE [Concomitant]
     Indication: ANTIBIOTIC PROPHYLAXIS
     Dosage: 1000000 X 2 DAY
     Route: 048
  3. IDARUBICIN [Concomitant]
     Indication: LEUKAEMIA
     Dosage: 8 MG/M2
     Route: 048
  4. CYTARABINE [Concomitant]
     Indication: LEUKAEMIA
     Dosage: 200 MG/M2
     Route: 042

REACTIONS (4)
  - Cardiac failure [Fatal]
  - Leukaemia [Fatal]
  - Condition aggravated [Fatal]
  - Renal impairment [Unknown]
